FAERS Safety Report 7320825-2 (Version None)
Quarter: 2011Q1

REPORT INFORMATION
  Report Type: 
  Country: None (occurrence: None)
  Receive Date: 20110228
  Receipt Date: 20110221
  Transmission Date: 20110831
  Serious: Yes (Death, Other)
  Sender: FDA-Public Use
  Company Number: US-TEVA-268153USA

PATIENT
  Age: 25 Year
  Sex: Female

DRUGS (6)
  1. TRETINOIN TOPICAL SOLUTION USP 0.05% [Suspect]
     Indication: ACUTE PROMYELOCYTIC LEUKAEMIA
     Dosage: 50 MG EVERY 12 HOURS
     Route: 048
  2. ACICLOVIR [Concomitant]
     Indication: PROPHYLAXIS
  3. DAUNORUBICIN [Concomitant]
     Indication: ACUTE PROMYELOCYTIC LEUKAEMIA
  4. NORFLOXACIN [Concomitant]
     Indication: PROPHYLAXIS
  5. CYTARABINE [Concomitant]
     Indication: ACUTE PROMYELOCYTIC LEUKAEMIA
  6. FLUCONAZOLE [Concomitant]
     Indication: PROPHYLAXIS

REACTIONS (14)
  - CLOSTRIDIUM TEST POSITIVE [None]
  - BLOOD CREATININE INCREASED [None]
  - DIARRHOEA [None]
  - KLEBSIELLA TEST POSITIVE [None]
  - GENERAL PHYSICAL HEALTH DETERIORATION [None]
  - BLISTER [None]
  - STAPHYLOCOCCUS TEST POSITIVE [None]
  - LIVER FUNCTION TEST ABNORMAL [None]
  - SEPSIS [None]
  - HYPOTENSION [None]
  - NECROSIS [None]
  - TACHYCARDIA [None]
  - GENITAL ULCERATION [None]
  - ENTEROCOCCUS TEST POSITIVE [None]
